FAERS Safety Report 21504819 (Version 3)
Quarter: 2023Q1

REPORT INFORMATION
  Report Type: Spontaneous
  Country: US (occurrence: None)
  Receive Date: 20221025
  Receipt Date: 20230203
  Transmission Date: 20230418
  Serious: No
  Sender: FDA-Public Use
  Company Number: 2022A342742

PATIENT
  Sex: Female
  Weight: 71.7 kg

DRUGS (2)
  1. SAPHNELO [Suspect]
     Active Substance: ANIFROLUMAB-FNIA
     Indication: Systemic lupus erythematosus
     Dosage: MONTHLY
     Route: 042
     Dates: start: 202208, end: 202210
  2. SAPHNELO [Suspect]
     Active Substance: ANIFROLUMAB-FNIA
     Indication: Rheumatoid arthritis
     Dosage: MONTHLY
     Route: 042
     Dates: start: 202208, end: 202210

REACTIONS (4)
  - Headache [Unknown]
  - Dizziness [Unknown]
  - Vomiting [Unknown]
  - Rash [Unknown]
